FAERS Safety Report 6038671-9 (Version None)
Quarter: 2009Q1

REPORT INFORMATION
  Report Type: 
  Country: None (occurrence: None)
  Receive Date: 20090114
  Receipt Date: 20090114
  Transmission Date: 20090719
  Serious: Yes (Hospitalization, Disabling, Other)
  Sender: FDA-Public Use
  Company Number: None

PATIENT
  Age: 40 Year
  Sex: Female
  Weight: 48.0813 kg

DRUGS (5)
  1. TRILEPTAL [Suspect]
     Indication: AFFECTIVE DISORDER
     Dosage: 150 MG. TWICE DAILY UNK
     Route: 065
  2. SYMBECOR [Concomitant]
  3. SINGULAIR [Concomitant]
  4. ALBUTEROL [Concomitant]
  5. ALBUREROL BREATHING TREATMENTS [Concomitant]

REACTIONS (4)
  - AGGRESSION [None]
  - AGITATION [None]
  - DEPRESSION [None]
  - SUICIDAL IDEATION [None]
